FAERS Safety Report 14418442 (Version 2)
Quarter: 2018Q3

REPORT INFORMATION
  Report Type: Spontaneous
  Country: US (occurrence: US)
  Receive Date: 20180122
  Receipt Date: 20180713
  Transmission Date: 20181010
  Serious: No
  Sender: FDA-Public Use
  Company Number: US-INTERCEPT-PMOCA2017001359

PATIENT

DRUGS (9)
  1. NEXIUM [Concomitant]
     Active Substance: ESOMEPRAZOLE MAGNESIUM
  2. MULTIVITAMINES WITH IRON [Concomitant]
  3. NIACIN. [Concomitant]
     Active Substance: NIACIN
  4. ASPIRIN. [Concomitant]
     Active Substance: ASPIRIN
  5. CIPRO [Concomitant]
     Active Substance: CIPROFLOXACIN HYDROCHLORIDE
  6. VITAMIN A+D GRX OINTMENT [Concomitant]
  7. ASCRIPTIN [Concomitant]
     Active Substance: ASPIRIN
  8. OCALIVA [Suspect]
     Active Substance: OBETICHOLIC ACID
     Indication: PRIMARY BILIARY CHOLANGITIS
     Dosage: 5 MG, QD
     Route: 048
     Dates: start: 20170929
  9. ZORTRESS [Concomitant]
     Active Substance: EVEROLIMUS

REACTIONS (3)
  - Alopecia [Unknown]
  - Drug dose omission [Unknown]
  - Pruritus [Unknown]

NARRATIVE: CASE EVENT DATE: 201711
